FAERS Safety Report 16311780 (Version 2)
Quarter: 2019Q2

REPORT INFORMATION
  Report Type: Spontaneous
  Country: IN (occurrence: IN)
  Receive Date: 20190514
  Receipt Date: 20190514
  Transmission Date: 20190711
  Serious: Yes (Death, Hospitalization)
  Sender: FDA-Public Use
  Company Number: PHHY2019IN109184

PATIENT
  Age: 59 Year
  Sex: Female

DRUGS (1)
  1. PREDNISOLONE. [Suspect]
     Active Substance: PREDNISOLONE
     Indication: INFLAMMATORY BOWEL DISEASE
     Dosage: 40 MG, QD
     Route: 048

REACTIONS (12)
  - Septic shock [Fatal]
  - Mucormycosis [Unknown]
  - Accidental exposure to product [Unknown]
  - Oedema peripheral [Unknown]
  - Metabolic acidosis [Unknown]
  - Hyponatraemia [Unknown]
  - Vomiting [Unknown]
  - Hypotension [Fatal]
  - Multiple organ dysfunction syndrome [Fatal]
  - Abdominal distension [Unknown]
  - Product used for unknown indication [Unknown]
  - Hypoxia [Unknown]
